FAERS Safety Report 5709920-9 (Version None)
Quarter: 2008Q2

REPORT INFORMATION
  Report Type: 
  Country: None (occurrence: None)
  Receive Date: 20080418
  Receipt Date: 20070418
  Transmission Date: 20081010
  Serious: No
  Sender: FDA-Public Use
  Company Number: AU-ASTRAZENECA-2007UW07705

PATIENT
  Age: 59 Year
  Sex: Male
  Weight: 59.9 kg

DRUGS (5)
  1. TOPROL-XL [Suspect]
     Route: 048
  2. FLOMAX [Concomitant]
  3. CHILDREN'S ASPIRIN [Concomitant]
  4. VITAMIN CAP [Concomitant]
  5. CALCIUM [Concomitant]
     Indication: MINERAL SUPPLEMENTATION

REACTIONS (1)
  - PROSTATIC DISORDER [None]
